FAERS Safety Report 9165319 (Version 1)
Quarter: 2013Q1

REPORT INFORMATION
  Report Type: Spontaneous
  Country: FR (occurrence: FR)
  Receive Date: 20130315
  Receipt Date: 20130315
  Transmission Date: 20140127
  Serious: Yes (Life-Threatening)
  Sender: FDA-Public Use
  Company Number: FR-PFIZER INC-2013084119

PATIENT
  Age: 26 Year
  Sex: Female

DRUGS (6)
  1. MITOXANTRONE HCL [Suspect]
     Indication: MULTIPLE SCLEROSIS
     Dosage: 20 MG, MONTHLY
     Route: 042
     Dates: start: 200402, end: 200407
  2. TYSABRI [Suspect]
     Indication: MULTIPLE SCLEROSIS
     Dosage: 300 MG, MONTHLY
     Route: 042
     Dates: start: 200710, end: 201206
  3. ENDOXAN [Suspect]
     Indication: MULTIPLE SCLEROSIS
     Dosage: 700 MG/M2, MONTHLY
     Route: 042
     Dates: start: 200505, end: 200511
  4. BETAFERON [Concomitant]
  5. LAMICTAL [Concomitant]
  6. COUMADINE [Concomitant]

REACTIONS (1)
  - Invasive ductal breast carcinoma [Not Recovered/Not Resolved]
